FAERS Safety Report 10744011 (Version 1)
Quarter: 2015Q1

REPORT INFORMATION
  Report Type: Spontaneous
  Country: US (occurrence: US)
  Receive Date: 20150128
  Receipt Date: 20150128
  Transmission Date: 20150721
  Serious: No
  Sender: FDA-Public Use
  Company Number: US-BIOGENIDEC-2015BI008653

PATIENT
  Sex: Female

DRUGS (5)
  1. REBIF [Concomitant]
     Active Substance: INTERFERON BETA-1A
     Indication: MULTIPLE SCLEROSIS
  2. TECFIDERA [Suspect]
     Active Substance: DIMETHYL FUMARATE
     Indication: MULTIPLE SCLEROSIS
  3. AMPYRA [Concomitant]
     Active Substance: DALFAMPRIDINE
  4. GILENYA [Concomitant]
     Active Substance: FINGOLIMOD HYDROCHLORIDE
  5. WELLBUTRIN [Concomitant]
     Active Substance: BUPROPION HYDROCHLORIDE

REACTIONS (32)
  - Memory impairment [Unknown]
  - Musculoskeletal disorder [Unknown]
  - Hypoaesthesia [Unknown]
  - Ataxia [Unknown]
  - Disturbance in attention [Unknown]
  - Migraine [Unknown]
  - Blindness [Unknown]
  - Dizziness [Unknown]
  - Stress urinary incontinence [Unknown]
  - Affect lability [Unknown]
  - Feeling abnormal [Unknown]
  - Pain [Unknown]
  - Dysphagia [Unknown]
  - Gait disturbance [Unknown]
  - Urinary incontinence [Unknown]
  - Depression [Unknown]
  - Influenza like illness [Unknown]
  - Arthralgia [Unknown]
  - Joint swelling [Unknown]
  - Dysstasia [Unknown]
  - Coordination abnormal [Unknown]
  - Balance disorder [Unknown]
  - Mental impairment [Unknown]
  - Pain in extremity [Unknown]
  - Diplopia [Unknown]
  - Muscular weakness [Unknown]
  - Visual impairment [Unknown]
  - Paraesthesia [Unknown]
  - Fatigue [Unknown]
  - Temperature intolerance [Unknown]
  - Multiple sclerosis [Unknown]
  - Vision blurred [Unknown]
